FAERS Safety Report 24034850 (Version 2)
Quarter: 2024Q3

REPORT INFORMATION
  Report Type: Spontaneous
  Country: US (occurrence: US)
  Receive Date: 20240701
  Receipt Date: 20240704
  Transmission Date: 20241016
  Serious: Yes (Other)
  Sender: ABBVIE
  Company Number: US-ABBVIE-5818931

PATIENT
  Sex: Female

DRUGS (1)
  1. URSO [Suspect]
     Active Substance: URSODIOL
     Indication: Product used for unknown indication
     Dosage: FORM STRENGTH: 250 MG
     Route: 065

REACTIONS (3)
  - Breast cancer [Unknown]
  - Upper respiratory tract infection [Recovered/Resolved]
  - Hepatic cirrhosis [Unknown]
